FAERS Safety Report 7402624-6 (Version None)
Quarter: 2011Q1

REPORT INFORMATION
  Report Type: 
  Country: None (occurrence: None)
  Receive Date: 20110331
  Receipt Date: 20110317
  Transmission Date: 20110831
  Serious: Yes (Life-Threatening, Hospitalization)
  Sender: FDA-Public Use
  Company Number: 2011001130

PATIENT
  Age: 69 Year
  Sex: Female

DRUGS (6)
  1. AMANTADINE HCL [Concomitant]
  2. STOGAR [Concomitant]
  3. TARCEVA [Suspect]
     Indication: LUNG ADENOCARCINOMA
     Dosage: 150 MG, QD, ORAL
     Route: 048
     Dates: start: 20101029, end: 20101122
  4. MAGNESIUM (MAGNESIUM OXIDE) [Concomitant]
  5. WARFARIN SODIUM [Concomitant]
  6. PANTOSIN (PANTETHINE) [Concomitant]

REACTIONS (4)
  - LUNG INFILTRATION [None]
  - LUNG DISORDER [None]
  - HYPOXIA [None]
  - EJECTION FRACTION DECREASED [None]
